FAERS Safety Report 7576683-4 (Version None)
Quarter: 2011Q2

REPORT INFORMATION
  Report Type: 
  Country: None (occurrence: None)
  Receive Date: 20110628
  Receipt Date: 20110120
  Transmission Date: 20111010
  Serious: Yes (Hospitalization, Other)
  Sender: FDA-Public Use
  Company Number: US-BAYER-201027129NA

PATIENT
  Age: 17 Year
  Sex: Female
  Weight: 86.168 kg

DRUGS (6)
  1. YASMIN [Suspect]
     Indication: PREMENSTRUAL SYNDROME
     Dosage: UNK
     Route: 048
     Dates: start: 20030101, end: 20050101
  2. FEMCON FE [Concomitant]
     Indication: PREMENSTRUAL SYNDROME
     Dosage: UNK
     Dates: start: 20100101
  3. YAZ [Suspect]
     Indication: PREMENSTRUAL SYNDROME
     Dosage: UNK
     Route: 048
     Dates: start: 20070101, end: 20081001
  4. BUSPIRONE HCL [Concomitant]
     Indication: ANXIETY
     Dosage: UNK
     Dates: start: 20000101, end: 20030101
  5. ASCORBIC ACID [Concomitant]
  6. NAPROXEN [Concomitant]
     Dosage: UNK
     Dates: start: 20080101, end: 20100101

REACTIONS (13)
  - GALLBLADDER INJURY [None]
  - GASTRITIS [None]
  - ABDOMINAL PAIN UPPER [None]
  - RENAL FAILURE [None]
  - NAUSEA [None]
  - BILIARY DYSKINESIA [None]
  - HEPATOBILIARY SCAN ABNORMAL [None]
  - VOMITING [None]
  - DEHYDRATION [None]
  - FLATULENCE [None]
  - CHOLECYSTITIS CHRONIC [None]
  - GALLBLADDER CHOLESTEROLOSIS [None]
  - HIATUS HERNIA [None]
